FAERS Safety Report 8062573-X (Version None)
Quarter: 2012Q1

REPORT INFORMATION
  Report Type: 
  Country: None (occurrence: None)
  Receive Date: 20120118
  Receipt Date: 20120109
  Transmission Date: 20120608
  Serious: No
  Sender: FDA-Public Use
  Company Number: 1000025471

PATIENT
  Age: 75 Year
  Sex: Male

DRUGS (9)
  1. ZOCOR [Concomitant]
  2. TAMSULOSIN (TAMSULOSIN) (TAMSULOSIN) [Concomitant]
  3. VIIBRYD [Suspect]
     Indication: MAJOR DEPRESSION
     Dosage: 20 MG (20 M,1 IN 1 D), ORAL
     Route: 048
     Dates: start: 20111107, end: 20111107
  4. ARICEPT [Concomitant]
  5. VIIBRYD [Suspect]
     Indication: MAJOR DEPRESSION
     Dosage: 10 MG (10 M,1 IN 1 D), ORAL
     Route: 048
     Dates: start: 20111031, end: 20111106
  6. ASPIRIN [Concomitant]
  7. CALCIUM (CALCIUM) (CALCIUM) [Concomitant]
  8. PRILOSEC (OMEPRAZOLE) (OMEPRAZOLE) [Concomitant]
  9. DIPHENHYDRAMINE HYDROCHLORIDE [Concomitant]

REACTIONS (1)
  - PRIAPISM [None]
